FAERS Safety Report 4353067-3 (Version None)
Quarter: 2004Q2

REPORT INFORMATION
  Report Type: 
  Country: None (occurrence: None)
  Receive Date: 20040430
  Receipt Date: 20040315
  Transmission Date: 20050107
  Serious: No
  Sender: FDA-Public Use
  Company Number: 205278

PATIENT
  Sex: Male
  Weight: 127 kg

DRUGS (2)
  1. XOLAIR [Suspect]
     Indication: ASTHMA
     Dosage: 300 MG, Q2W, SUBCUTANEOUS; 375 MG, Q2W, SUBCUTANEOUS
     Route: 058
     Dates: start: 20040101
  2. XOLAIR [Suspect]
     Indication: ASTHMA
     Dosage: 300 MG, Q2W, SUBCUTANEOUS; 375 MG, Q2W, SUBCUTANEOUS
     Route: 058
     Dates: start: 20040301

REACTIONS (2)
  - FATIGUE [None]
  - RED BLOOD CELL SEDIMENTATION RATE INCREASED [None]
